FAERS Safety Report 4839054-7 (Version None)
Quarter: 2005Q4

REPORT INFORMATION
  Report Type: 
  Country: None (occurrence: None)
  Receive Date: 20051031
  Receipt Date: 20050906
  Transmission Date: 20060501
  Serious: No
  Sender: FDA-Public Use
  Company Number: 200516603US

PATIENT
  Sex: Female

DRUGS (2)
  1. KETEK [Suspect]
     Indication: POSTOPERATIVE INFECTION
     Dosage: PO
     Route: 048
     Dates: start: 20050722, end: 20050726
  2. KETEK [Suspect]
     Indication: POSTOPERATIVE INFECTION
     Dosage: PO
     Route: 048
     Dates: start: 20050727

REACTIONS (1)
  - POSTOPERATIVE INFECTION [None]
